FAERS Safety Report 8815654 (Version 2)
Quarter: 2013Q2

REPORT INFORMATION
  Report Type: Report from Study
  Country: GB (occurrence: GB)
  Receive Date: 20120928
  Receipt Date: 20130408
  Transmission Date: 20140414
  Serious: Yes (Death, Congenital Anomaly)
  Sender: FDA-Public Use
  Company Number: PHHY2012GB083845

PATIENT
  Sex: 0

DRUGS (1)
  1. TEGRETOL [Suspect]
     Indication: EPILEPSY
     Dosage: 200 MG, DAILY
     Route: 064

REACTIONS (3)
  - Death neonatal [Fatal]
  - Congenital hydrocephalus [Unknown]
  - Foetal exposure during pregnancy [Unknown]
